FAERS Safety Report 6734715-7 (Version None)
Quarter: 2010Q2

REPORT INFORMATION
  Report Type: 
  Country: None (occurrence: None)
  Receive Date: 20100519
  Receipt Date: 20100519
  Transmission Date: 20101027
  Serious: Yes (Other)
  Sender: FDA-Public Use
  Company Number: None

PATIENT
  Sex: Male
  Weight: 98.4306 kg

DRUGS (1)
  1. RANEXA [Suspect]
     Dosage: 1 TAB BID PO
     Route: 048

REACTIONS (7)
  - BLOOD PRESSURE DECREASED [None]
  - DIZZINESS [None]
  - EXTRASYSTOLES [None]
  - HEART RATE DECREASED [None]
  - PRURITUS [None]
  - RASH [None]
  - SOMNOLENCE [None]
